FAERS Safety Report 4774456-9 (Version None)
Quarter: 2005Q3

REPORT INFORMATION
  Report Type: 
  Country: None (occurrence: None)
  Receive Date: 20050921
  Receipt Date: 20050919
  Transmission Date: 20060218
  Serious: Yes (Life-Threatening, Hospitalization)
  Sender: FDA-Public Use
  Company Number: PHEH2005US10405

PATIENT
  Sex: Male

DRUGS (4)
  1. BIAXIN [Concomitant]
  2. ALLEGRA [Concomitant]
  3. ANTIHYPERTENSIVES [Concomitant]
  4. LAMISIL [Suspect]
     Dosage: 250 MG, QD
     Route: 048
     Dates: start: 20050401

REACTIONS (3)
  - HEPATIC ENZYME INCREASED [None]
  - HEPATORENAL SYNDROME [None]
  - LIVER TRANSPLANT [None]
